FAERS Safety Report 20902618 (Version 1)
Quarter: 2022Q2

REPORT INFORMATION
  Report Type: Spontaneous
  Country: US (occurrence: US)
  Receive Date: 20220601
  Receipt Date: 20220601
  Transmission Date: 20220721
  Serious: No
  Sender: FDA-Public Use
  Company Number: US-PFIZER INC-202200772172

PATIENT
  Age: 32 Year
  Sex: Female

DRUGS (5)
  1. PAXLOVID [Suspect]
     Active Substance: NIRMATRELVIR\RITONAVIR
     Indication: COVID-19 treatment
     Dosage: UNK
     Dates: start: 20220516, end: 20220521
  2. ONE A DAY [MINERALS NOS;VITAMINS NOS] [Concomitant]
     Dosage: UNK
     Dates: start: 20210901
  3. CALCIUM (NATURE MADE) [Concomitant]
     Dosage: 500 MG
  4. IRON (NATURE MADE) [Concomitant]
     Dosage: 65 MG
  5. ASPIRIN [ACETYLSALICYLIC ACID] (ST JOSEPH) [Concomitant]
     Dosage: 81 MG
     Dates: start: 20220516

REACTIONS (5)
  - COVID-19 [Not Recovered/Not Resolved]
  - Disease recurrence [Not Recovered/Not Resolved]
  - Nasal congestion [Not Recovered/Not Resolved]
  - Pain [Not Recovered/Not Resolved]
  - Maternal exposure during pregnancy [Unknown]

NARRATIVE: CASE EVENT DATE: 20220516
